FAERS Safety Report 5499534-0 (Version None)
Quarter: 2007Q4

REPORT INFORMATION
  Report Type: 
  Country: None (occurrence: None)
  Receive Date: 20071026
  Receipt Date: 20071018
  Transmission Date: 20080405
  Serious: Yes (Hospitalization)
  Sender: FDA-Public Use
  Company Number: IN-JNJFOC-20071002347

PATIENT
  Sex: Male
  Weight: 53 kg

DRUGS (2)
  1. OLANZAPINE [Suspect]
  2. OLANZAPINE [Suspect]
     Indication: BIPOLAR I DISORDER

REACTIONS (1)
  - SINUSITIS [None]
